FAERS Safety Report 7733084-3 (Version None)
Quarter: 2011Q3

REPORT INFORMATION
  Report Type: 
  Country: None (occurrence: None)
  Receive Date: 20110907
  Receipt Date: 20110831
  Transmission Date: 20111222
  Serious: Yes (Other)
  Sender: FDA-Public Use
  Company Number: GB-MERCK-1109GBR00009

PATIENT
  Age: 75 Year
  Sex: Female
  Weight: 75 kg

DRUGS (8)
  1. BUMETANIDE [Concomitant]
     Route: 065
  2. GLICLAZIDE [Concomitant]
     Route: 048
  3. CLONIDINE HYDROCHLORIDE [Concomitant]
     Route: 065
  4. METFORMIN [Concomitant]
     Route: 048
  5. PRAVASTATIN SODIUM [Concomitant]
     Route: 048
  6. JANUVIA [Suspect]
     Indication: DIABETES MELLITUS
     Route: 048
     Dates: start: 20110712, end: 20110721
  7. AMILORIDE [Concomitant]
     Route: 065
  8. LEVOTHYROXINE SODIUM [Concomitant]
     Route: 065

REACTIONS (5)
  - DEPRESSED MOOD [None]
  - VISION BLURRED [None]
  - ASTHENIA [None]
  - NAUSEA [None]
  - DECREASED APPETITE [None]
